FAERS Safety Report 18973100 (Version 5)
Quarter: 2023Q2

REPORT INFORMATION
  Report Type: Report from Study
  Country: CA (occurrence: CA)
  Receive Date: 20210305
  Receipt Date: 20230616
  Transmission Date: 20230722
  Serious: Yes (Death, Hospitalization, Other)
  Sender: FDA-Public Use
  Company Number: CA-SHIRE-CA201907028

PATIENT
  Age: 74 Year
  Sex: Male
  Weight: 61 kg

DRUGS (4)
  1. HUMAN IMMUNOGLOBULIN G [Suspect]
     Active Substance: HUMAN IMMUNOGLOBULIN G
     Indication: Secondary immunodeficiency
     Dosage: 6 GRAM, 1/WEEK
     Route: 058
     Dates: start: 20190227
  2. HUMAN IMMUNOGLOBULIN G [Suspect]
     Active Substance: HUMAN IMMUNOGLOBULIN G
     Dosage: 6 GRAM, 1/WEEK
     Route: 058
  3. HUMAN IMMUNOGLOBULIN G [Suspect]
     Active Substance: HUMAN IMMUNOGLOBULIN G
     Dosage: 6 GRAM,1/WEEK
     Route: 050
  4. LIPITOR [Concomitant]
     Active Substance: ATORVASTATIN CALCIUM
     Indication: Product used for unknown indication
     Dosage: UNK
     Route: 065

REACTIONS (9)
  - Chronic obstructive pulmonary disease [Fatal]
  - Pulmonary embolism [Fatal]
  - Injection site discomfort [Recovered/Resolved]
  - Infusion site discolouration [Not Recovered/Not Resolved]
  - Infusion site haemorrhage [Recovered/Resolved]
  - Injection site swelling [Unknown]
  - Blood pressure increased [Unknown]
  - Infusion site swelling [Unknown]
  - Infusion site erythema [Unknown]

NARRATIVE: CASE EVENT DATE: 20190227
